FAERS Safety Report 10409685 (Version 5)
Quarter: 2014Q4

REPORT INFORMATION
  Report Type: Report from Study
  Country: BR (occurrence: BR)
  Receive Date: 20140826
  Receipt Date: 20141229
  Transmission Date: 20150528
  Serious: Yes (Other)
  Sender: FDA-Public Use
  Company Number: PHHY2014BR105839

PATIENT
  Age: 70 Year
  Sex: Female
  Weight: 95 kg

DRUGS (14)
  1. METFORMIN [Concomitant]
     Active Substance: METFORMIN HYDROCHLORIDE
     Dosage: 1 DF, TID (IN THE MORNING, IN THE AFTERNOON AND AT NIGHT)
     Route: 048
     Dates: start: 2010
  2. ENALAPRIL [Concomitant]
     Active Substance: ENALAPRIL
     Indication: RENAL DISORDER
     Dosage: 1 DF (15 MG), DAILY
     Route: 065
     Dates: start: 2008
  3. DIOSMIN [Concomitant]
     Active Substance: DIOSMIN
     Indication: CARDIOVASCULAR DISORDER
     Dosage: 1 DF, Q12H
     Route: 048
     Dates: start: 2005
  4. SIMVASTATIN. [Concomitant]
     Active Substance: SIMVASTATIN
     Indication: BLOOD CHOLESTEROL INCREASED
     Dosage: 1 DF, DAILY
     Route: 065
     Dates: start: 201402
  5. METFORMIN [Concomitant]
     Active Substance: METFORMIN HYDROCHLORIDE
     Indication: DIABETES MELLITUS
     Dosage: 1 DF, DAILY
     Route: 048
     Dates: start: 2003
  6. SELOZOK [Concomitant]
     Active Substance: METOPROLOL SUCCINATE
     Indication: CARDIAC DISORDER
     Dosage: 1 DF, DAILY
     Route: 048
     Dates: start: 2012
  7. SANDOSTATIN LAR DEPOT [Suspect]
     Active Substance: OCTREOTIDE ACETATE
     Indication: ACROMEGALY
     Dosage: 30 MG, EVERY 28 DAYS OR 30 DAYS
     Route: 030
     Dates: start: 2003, end: 201409
  8. FUROSEMIDE. [Concomitant]
     Active Substance: FUROSEMIDE
     Indication: RENAL DISORDER
     Dosage: 1 DF, DAILY
     Route: 048
     Dates: start: 2008
  9. ENALAPRIL [Concomitant]
     Active Substance: ENALAPRIL
     Dosage: 1 DF (5 MG), DAILY
  10. INSULIN HUMAN [Concomitant]
     Active Substance: INSULIN HUMAN
     Dosage: 85 U, (50 UNITS IN THE MORNING, 30 UNITS IN THE AFTERNOON AND 5 UNITS AT NIGHT)
     Route: 065
  11. BENICAR HCT [Concomitant]
     Active Substance: HYDROCHLOROTHIAZIDE\OLMESARTAN MEDOXOMIL
     Indication: HYPERTENSION
     Dosage: 1 DF (14/12.5), IN THE MORNING (DAILY)
     Route: 048
     Dates: start: 2005
  12. BENICAR HCT [Concomitant]
     Active Substance: HYDROCHLOROTHIAZIDE\OLMESARTAN MEDOXOMIL
     Dosage: 1 DF (40/12.5), QD
     Route: 048
     Dates: start: 2005
  13. INSULIN HUMAN [Concomitant]
     Active Substance: INSULIN HUMAN
     Indication: DIABETES MELLITUS
     Dosage: 10 U, UNK
     Route: 065
  14. AAS [Concomitant]
     Active Substance: ASPIRIN
     Indication: ANTICOAGULANT THERAPY
     Dosage: 1 DF, DAILY
     Route: 048
     Dates: start: 2003

REACTIONS (16)
  - Weight increased [Recovering/Resolving]
  - Viral infection [Unknown]
  - Weight decreased [Unknown]
  - Spinal pain [Recovering/Resolving]
  - Malaise [Unknown]
  - Joint injury [Recovered/Resolved]
  - Eating disorder [Unknown]
  - Diabetic retinopathy [Unknown]
  - Pneumonia [Unknown]
  - Oedema peripheral [Recovered/Resolved]
  - Fall [Recovered/Resolved]
  - Injection site pain [Recovered/Resolved]
  - Cataract [Not Recovered/Not Resolved]
  - Sleep disorder [Recovering/Resolving]
  - Gait disturbance [Recovering/Resolving]
  - Arthralgia [Recovered/Resolved]

NARRATIVE: CASE EVENT DATE: 2012
